FAERS Safety Report 20573835 (Version 2)
Quarter: 2022Q3

REPORT INFORMATION
  Report Type: Spontaneous
  Country: NL (occurrence: NL)
  Receive Date: 20220309
  Receipt Date: 20220804
  Transmission Date: 20221027
  Serious: Yes (Death, Hospitalization, Other)
  Sender: FDA-Public Use
  Company Number: NL-SAMSUNG BIOEPIS-SB-2022-05042

PATIENT
  Age: 32 Year
  Sex: Female

DRUGS (3)
  1. ADALIMUMAB [Suspect]
     Active Substance: ADALIMUMAB
     Indication: Neurosarcoidosis
     Dosage: UNKNOWN
     Route: 065
  2. INFLIXIMAB [Suspect]
     Active Substance: INFLIXIMAB
     Indication: Neurosarcoidosis
     Dosage: UNKNOWN
     Route: 065
  3. CYCLOPHOSPHAMIDE\DOXORUBICIN\ETOPOSIDE\PREDNISONE\VINCRISTINE [Suspect]
     Active Substance: CYCLOPHOSPHAMIDE\DOXORUBICIN\ETOPOSIDE\PREDNISONE\VINCRISTINE
     Indication: T-cell lymphoma
     Dosage: UNKNOWN
     Route: 065

REACTIONS (10)
  - Death [Fatal]
  - Epstein-Barr virus associated lymphoma [Unknown]
  - T-cell lymphoma [Recovering/Resolving]
  - Cellulitis [Unknown]
  - Sepsis [Unknown]
  - General physical health deterioration [Unknown]
  - Haemophagocytic lymphohistiocytosis [Unknown]
  - Immunodeficiency [Unknown]
  - Epidermal necrosis [Unknown]
  - Off label use [Unknown]
